FAERS Safety Report 9877866 (Version 1)
Quarter: 2014Q1

REPORT INFORMATION
  Report Type: Spontaneous
  Country: FR (occurrence: FR)
  Receive Date: 20140206
  Receipt Date: 20140206
  Transmission Date: 20141002
  Serious: Yes (Hospitalization)
  Sender: FDA-Public Use
  Company Number: FR-BAYER-2014-013802

PATIENT
  Age: 30 Year
  Sex: Female

DRUGS (3)
  1. CIFLOX [Suspect]
     Indication: ABSCESS BACTERIAL
     Dosage: 750 MG, BID
     Route: 048
     Dates: start: 20030814, end: 20030903
  2. BACTRIM-FORTE [Suspect]
     Indication: ABSCESS BACTERIAL
     Dosage: 1 DF, BID
     Route: 048
     Dates: start: 20030814, end: 20030903
  3. DOLIPRANE [Concomitant]

REACTIONS (1)
  - Neutropenia [Recovered/Resolved]
